FAERS Safety Report 6315423-3 (Version None)
Quarter: 2009Q3

REPORT INFORMATION
  Report Type: 
  Country: None (occurrence: None)
  Receive Date: 20090819
  Receipt Date: 20090807
  Transmission Date: 20100115
  Serious: No
  Sender: FDA-Public Use
  Company Number: BR-EISAI INC.-E2020-04990-SPO-BR

PATIENT
  Sex: Female

DRUGS (5)
  1. ERANZ [Suspect]
     Route: 048
     Dates: start: 20070101, end: 20070101
  2. DIONIL [Concomitant]
     Dosage: UNKNOWN
  3. METFORMIN [Concomitant]
     Dates: start: 19790101
  4. FLUOXETINE [Concomitant]
     Indication: DEPRESSION
     Dosage: UNKNOWN
     Dates: start: 20040101
  5. METHYLDOPA [Concomitant]
     Indication: HYPERTENSION
     Dosage: UNKNOWN

REACTIONS (8)
  - AGITATION [None]
  - DECREASED APPETITE [None]
  - HEADACHE [None]
  - HYPERTENSION [None]
  - HYPOGLYCAEMIA [None]
  - PARALYSIS [None]
  - PSYCHOTIC DISORDER [None]
  - URINARY INCONTINENCE [None]
